FAERS Safety Report 6153814-4 (Version None)
Quarter: 2009Q2

REPORT INFORMATION
  Report Type: 
  Country: None (occurrence: None)
  Receive Date: 20090414
  Receipt Date: 20080421
  Transmission Date: 20091009
  Serious: Yes (Hospitalization)
  Sender: FDA-Public Use
  Company Number: US-ASTRAZENECA-2006UW07705

PATIENT
  Age: 44 Year
  Sex: Male
  Weight: 79.6 kg

DRUGS (16)
  1. SEROQUEL [Suspect]
     Indication: PRURITUS
     Route: 048
     Dates: start: 19970101, end: 20040101
  2. SEROQUEL [Suspect]
     Indication: INSOMNIA
     Route: 048
     Dates: start: 19970101, end: 20040101
  3. ALBUTEROL [Concomitant]
  4. ATENOLOL [Concomitant]
  5. GLIPIZIDE [Concomitant]
  6. LIBRIUM [Concomitant]
  7. NALTREXONE HYDROCHLORIDE [Concomitant]
  8. LISINOPRIL [Concomitant]
  9. INTERFERON [Concomitant]
  10. VARDENAFIL [Concomitant]
  11. ASPIRIN [Concomitant]
  12. HYDROCORTISONE [Concomitant]
  13. LEVALBUTEROL HCL [Concomitant]
  14. TRAMADOL [Concomitant]
  15. GLYBURIDE [Concomitant]
  16. OMEPRAZOLE [Concomitant]

REACTIONS (25)
  - ABDOMINAL PAIN [None]
  - ALCOHOL DETOXIFICATION [None]
  - ARTHRALGIA [None]
  - BACK PAIN [None]
  - CHEST PAIN [None]
  - CORNEAL EROSION [None]
  - DIABETES MELLITUS [None]
  - DIARRHOEA [None]
  - DYSPNOEA [None]
  - DYSURIA [None]
  - ERECTILE DYSFUNCTION [None]
  - ERYTHEMA [None]
  - ESSENTIAL HYPERTENSION [None]
  - EYE PAIN [None]
  - HYPERTENSION [None]
  - NASAL CONGESTION [None]
  - NIGHTMARE [None]
  - PAIN IN EXTREMITY [None]
  - POLLAKIURIA [None]
  - PRODUCTIVE COUGH [None]
  - RENAL PAIN [None]
  - SUICIDAL IDEATION [None]
  - SUICIDE ATTEMPT [None]
  - THROAT IRRITATION [None]
  - URINARY INCONTINENCE [None]
